FAERS Safety Report 5491337-6 (Version None)
Quarter: 2007Q4

REPORT INFORMATION
  Report Type: 
  Country: None (occurrence: None)
  Receive Date: 20071017
  Receipt Date: 20071008
  Transmission Date: 20080405
  Serious: Yes (Hospitalization)
  Sender: FDA-Public Use
  Company Number: 2007SP020357

PATIENT
  Age: 61 Year
  Sex: Male
  Weight: 68 kg

DRUGS (6)
  1. TEMOZOLOMIDE [Suspect]
     Indication: GASTROINTESTINAL CARCINOMA
     Dosage: 270 MG; QD, PO
     Route: 048
     Dates: start: 20070820, end: 20071006
  2. TEMOZOLOMIDE [Suspect]
     Indication: RESPIRATORY TRACT CARCINOMA IN SITU
     Dosage: 270 MG; QD, PO
     Route: 048
     Dates: start: 20070820, end: 20071006
  3. FRUSEMIDE [Concomitant]
  4. DIGOXIN [Concomitant]
  5. AMIODARONE [Concomitant]
  6. GTN-S [Concomitant]

REACTIONS (2)
  - ATRIAL FIBRILLATION [None]
  - PULMONARY OEDEMA [None]
